FAERS Safety Report 9955676 (Version 1)
Quarter: 2014Q1

REPORT INFORMATION
  Report Type: Report from Study
  Country: US (occurrence: US)
  Receive Date: 20140304
  Receipt Date: 20140304
  Transmission Date: 20141002
  Serious: No
  Sender: FDA-Public Use
  Company Number: US-ABBVIE-13P-163-1088166-00

PATIENT
  Age: 35 Year
  Sex: Female

DRUGS (9)
  1. HUMIRA [Suspect]
     Indication: COLITIS ULCERATIVE
     Dates: start: 20130423
  2. APRISO [Concomitant]
     Indication: COLITIS
  3. MULTIVITAMIN [Concomitant]
     Indication: PRODUCT USED FOR UNKNOWN INDICATION
  4. PREDNISONE [Concomitant]
     Indication: PROCTITIS
  5. WELLBUTRIN [Concomitant]
     Indication: DEPRESSION
  6. VALACYCLOVIR [Concomitant]
     Indication: HERPES SIMPLEX
     Dosage: LOW DOSE
  7. VALACYCLOVIR [Concomitant]
     Indication: PROPHYLAXIS
  8. TOPAMAX [Concomitant]
     Indication: MIGRAINE
  9. B12 [Concomitant]
     Indication: PRODUCT USED FOR UNKNOWN INDICATION

REACTIONS (1)
  - Nasopharyngitis [Recovering/Resolving]
